FAERS Safety Report 9026635 (Version 2)
Quarter: 2013Q1

REPORT INFORMATION
  Report Type: Spontaneous
  Country: JP (occurrence: None)
  Receive Date: 20130107
  Receipt Date: 20130211
  Transmission Date: 20140127
  Serious: Yes (Disabling)
  Sender: FDA-Public Use
  Company Number: TCI2012A07551

PATIENT
  Age: 67 Year
  Sex: Male

DRUGS (4)
  1. METACT [Suspect]
     Indication: DIABETES MELLITUS
     Route: 048
     Dates: start: 20100914, end: 20121225
  2. HARNAL (TAMSULOSIN HYDROCHLORIDE) [Concomitant]
  3. CADUET 4  (AMLODIPINE BESILATE, ATORVASTATIN CALCIUM) [Concomitant]
  4. LIPITOR (ATORVASTATIN CALCIUM) [Concomitant]

REACTIONS (1)
  - Interstitial lung disease [None]
